FAERS Safety Report 6934568 (Version 5)
Quarter: 2013Q1

REPORT INFORMATION
  Report Type: Spontaneous
  Country: CA (occurrence: CA)
  Receive Date: 20090311
  Receipt Date: 20130129
  Transmission Date: 20140127
  Serious: Yes (Hospitalization, Other)
  Sender: FDA-Public Use
  Company Number: CA-AMGEN-QUU336979

PATIENT
  Age: 59 Year
  Sex: Male
  Weight: 103 kg

DRUGS (56)
  1. ENBREL [Suspect]
     Indication: RHEUMATOID ARTHRITIS
     Dosage: 50 MG, QWK
     Dates: start: 20060621, end: 20061016
  2. ENBREL [Suspect]
     Indication: PSORIASIS
  3. ACETAMINOPHEN [Concomitant]
     Indication: PAIN
     Dosage: 650 MG, Q6H
  4. DOCUSATE SODIUM [Concomitant]
     Indication: FAECES HARD
     Dosage: 100 MG, BID
  5. GABAPENTIN [Concomitant]
     Indication: NEURALGIA
     Dosage: 300 MG, TID
  6. HYDROXYCHLOROQUINE                 /00072603/ [Concomitant]
     Indication: ARTHRITIS
     Dosage: 400 MG, QD
  7. HYDROXYCHLOROQUINE                 /00072603/ [Concomitant]
     Dosage: 200 MG, QD
  8. INDAPAMIDE [Concomitant]
     Indication: BLOOD PRESSURE
     Dosage: 2.5 MG, QD
  9. NIFEDIPINE [Concomitant]
     Indication: BLOOD PRESSURE
     Dosage: 60 MG, QD
     Dates: start: 200804, end: 200805
  10. POTASSIUM CHLORIDE [Concomitant]
     Indication: MINERAL SUPPLEMENTATION
     Dosage: 1200 MG, BID
  11. ALTACE HCT [Concomitant]
     Indication: BLOOD PRESSURE
     Dosage: UNK
     Route: 048
     Dates: start: 20070827
  12. RANITIDINE [Concomitant]
     Indication: GASTRIC PH
     Dosage: 150 MG, BID
     Route: 048
     Dates: start: 200804
  13. SENNA                              /00142201/ [Concomitant]
     Indication: CONSTIPATION
     Dosage: 17.2 MG, BID
  14. DALTEPARIN [Concomitant]
     Dosage: 5000 IU, QD
     Route: 058
  15. BISACODYL [Concomitant]
     Dosage: UNK UNK, PRN
  16. LACTULOSE [Concomitant]
     Dosage: 30 ML, PRN
  17. ZOPICLONE [Concomitant]
     Dosage: 7.5 MG, PRN
  18. QUININE [Concomitant]
     Dosage: 300 MG, QD
     Route: 048
     Dates: start: 200804
  19. LYRICA [Concomitant]
     Indication: PAIN
     Dosage: 150 MG, BID
     Dates: start: 200804, end: 200805
  20. PERCOCET                           /00446701/ [Concomitant]
     Dosage: UNK UNK, Q6H
  21. MS CONTIN [Concomitant]
     Dosage: 30 MG, TID
  22. TEMAZEPAM [Concomitant]
     Indication: INSOMNIA
     Dosage: 30 MG, PRN
     Dates: start: 20010614
  23. ATIVAN [Concomitant]
     Dosage: 1 MG, PRN
  24. GRAVOL [Concomitant]
     Dosage: UNK
  25. PLAQUENIL                          /00072602/ [Concomitant]
     Dosage: 400 MG, QD
  26. ATALAK [Concomitant]
     Dosage: 60 MG, QD
  27. CLONAZEPAM [Concomitant]
     Dosage: UNK
  28. ETODOLAC [Concomitant]
     Dosage: 30 MG, Q8H
  29. RAMIPRIL [Concomitant]
     Dosage: 10 MG, QD
  30. ALDACTONE                          /00006201/ [Concomitant]
     Dosage: 12.5 MG, QD
     Route: 048
  31. METOPROLOL [Concomitant]
     Indication: HEART RATE IRREGULAR
     Dosage: 25 MG, BID
     Dates: start: 200804
  32. ASA [Concomitant]
     Dosage: 81 MG, QD
     Route: 048
  33. BACLOFEN [Concomitant]
     Dosage: 10 MG, QD
     Dates: start: 20070911
  34. BACLOFEN [Concomitant]
     Dosage: 40 MG, QD
  35. ANTIHYPERTENSIVES [Concomitant]
     Dosage: UNK
  36. LIPITOR [Concomitant]
     Indication: HYPERLIPIDAEMIA
     Dosage: 20 MG, QD
     Route: 048
     Dates: start: 200804
  37. TOPILENE [Concomitant]
     Dosage: UNK UNK, PRN
  38. MULTIVITAMINS [Concomitant]
     Dosage: UNK UNK, QD
  39. VITAMIN E                          /00110501/ [Concomitant]
     Dosage: UNK
  40. GINKGO BILOBA [Concomitant]
     Dosage: 60 MG, QD
  41. GINSENG                            /01384001/ [Concomitant]
     Dosage: 650 MG, QD
  42. COD LIVER OIL [Concomitant]
     Dosage: UNK UNK, QD
  43. CALCIUM MAGNESIUM [Concomitant]
     Dosage: UNK UNK, QD
  44. GLUCOSAMINE + CHONDROITIN          /01430901/ [Concomitant]
     Dosage: 900 MG, QD
  45. GARLIC                             /01570501/ [Concomitant]
     Dosage: 100 MG, QD
  46. DILAUDID [Concomitant]
     Indication: PAIN
     Dosage: 2 MG, PRN
     Dates: start: 200904
  47. SALINE                             /00075401/ [Concomitant]
     Dosage: UNK
     Route: 042
  48. ACETAMINOPHEN W/OXYCODONE [Concomitant]
     Dosage: UNK UNK, BID
     Dates: start: 20091022
  49. LAXATIVES [Concomitant]
  50. CORTISONE [Concomitant]
     Dosage: UNK
  51. OXYCODONE [Concomitant]
     Indication: PAIN
  52. THIAZIDE [Concomitant]
     Dosage: UNK
     Dates: end: 20080307
  53. DECADRON                           /00016001/ [Concomitant]
  54. PREDNISONE [Concomitant]
     Indication: RHEUMATOID ARTHRITIS
     Dosage: 10 MG, QD
  55. PREDNISONE [Concomitant]
     Dosage: 50 MG, UNK
  56. PROCTOSEDYL                        /00095901/ [Suspect]

REACTIONS (82)
  - Breast cancer male [Unknown]
  - Prostate cancer [Recovering/Resolving]
  - Cardiac valve disease [Unknown]
  - Left ventricular hypertrophy [Unknown]
  - Pulmonary oedema [Unknown]
  - Nephrolithiasis [Unknown]
  - Ureteric obstruction [Unknown]
  - Arthritis [Unknown]
  - Spondylitic myelopathy [Unknown]
  - Haemoglobin decreased [Unknown]
  - Gastroenteritis radiation [Unknown]
  - Spinal column stenosis [Unknown]
  - Spinal osteoarthritis [Unknown]
  - Spinal cord injury cervical [Unknown]
  - Intervertebral disc protrusion [Unknown]
  - Exostosis [Unknown]
  - Central nervous system lesion [Unknown]
  - Quadriparesis [Unknown]
  - Rotator cuff syndrome [Unknown]
  - Cognitive disorder [Unknown]
  - Fall [Unknown]
  - Muscle rupture [Unknown]
  - Impaired work ability [Unknown]
  - Mental disorder [Unknown]
  - Rectal haemorrhage [Unknown]
  - Neuralgia [Unknown]
  - Fracture [Unknown]
  - Cervical vertebral fracture [Unknown]
  - Open fracture [Unknown]
  - Osteoarthritis [Unknown]
  - Urosepsis [Unknown]
  - Demyelination [Unknown]
  - Multiple sclerosis [Unknown]
  - Cardiac failure congestive [Unknown]
  - Hypotension [Unknown]
  - Joint injury [Unknown]
  - Carpal tunnel syndrome [Unknown]
  - Neurogenic bladder [Unknown]
  - Neurogenic bowel [Unknown]
  - Sleep apnoea syndrome [Unknown]
  - Malaise [Unknown]
  - Chondrocalcinosis pyrophosphate [Unknown]
  - Gynaecomastia [Unknown]
  - Oedema [Unknown]
  - Procedural vomiting [Unknown]
  - Procedural nausea [Unknown]
  - Change of bowel habit [Unknown]
  - Staphylococcus test positive [Unknown]
  - Dermatitis [Unknown]
  - Loss of proprioception [Unknown]
  - Balance disorder [Unknown]
  - Musculoskeletal discomfort [Unknown]
  - Ataxia [Unknown]
  - Depressed mood [Unknown]
  - Rapid eye movements sleep abnormal [Unknown]
  - Restless legs syndrome [Unknown]
  - Alopecia [Unknown]
  - Contusion [Unknown]
  - Head injury [Unknown]
  - Neck injury [Unknown]
  - Constipation [Unknown]
  - Walking aid user [Not Recovered/Not Resolved]
  - Sciatica [Unknown]
  - Dysstasia [Unknown]
  - Gait disturbance [Unknown]
  - Neck pain [Unknown]
  - Intervertebral disc space narrowing [Unknown]
  - Facet joint syndrome [Unknown]
  - Oedema peripheral [Unknown]
  - Renal cyst [Unknown]
  - Proctalgia [Recovering/Resolving]
  - Nocturia [Unknown]
  - Chest discomfort [Unknown]
  - Cardiac murmur [Unknown]
  - Osteopenia [Unknown]
  - Intervertebral disc degeneration [Unknown]
  - Spondylolisthesis [Unknown]
  - Micturition urgency [Unknown]
  - Cellulitis [Unknown]
  - Paraesthesia [Unknown]
  - Psoriasis [Unknown]
  - Enterococcal infection [Unknown]
